FAERS Safety Report 5527958-1 (Version None)
Quarter: 2007Q4

REPORT INFORMATION
  Report Type: 
  Country: None (occurrence: None)
  Receive Date: 20071123
  Receipt Date: 20071109
  Transmission Date: 20080405
  Serious: No
  Sender: FDA-Public Use
  Company Number: 002#2#2007-00306

PATIENT
  Age: 73 Year
  Sex: Female
  Weight: 63 kg

DRUGS (8)
  1. NEUPRO [Suspect]
     Indication: PARKINSON'S DISEASE
     Dosage: 2MG/24H, 1 IN 1 TRANSDERMAL, 2MG/24H, 1 IN 1 D, TRANSDERMAL
     Route: 062
     Dates: start: 20070808, end: 20070811
  2. NEUPRO [Suspect]
     Indication: PARKINSON'S DISEASE
     Dosage: 2MG/24H, 1 IN 1 TRANSDERMAL, 2MG/24H, 1 IN 1 D, TRANSDERMAL
     Route: 062
     Dates: start: 20070808, end: 20070811
  3. NEUPRO [Suspect]
     Indication: PARKINSON'S DISEASE
     Dosage: 2MG/24H, 1 IN 1 TRANSDERMAL, 2MG/24H, 1 IN 1 D, TRANSDERMAL
     Route: 062
     Dates: start: 20070812, end: 20070813
  4. SINEMET [Concomitant]
  5. MIRAPEX [Concomitant]
  6. FOSAMAX [Concomitant]
  7. STAVELO [Concomitant]
  8. VITAMINS [Concomitant]

REACTIONS (2)
  - DEPRESSION [None]
  - SUICIDAL IDEATION [None]
